FAERS Safety Report 25923957 (Version 1)
Quarter: 2025Q4

REPORT INFORMATION
  Report Type: Spontaneous
  Country: EU (occurrence: EU)
  Receive Date: 20251015
  Receipt Date: 20251015
  Transmission Date: 20260117
  Serious: Yes (Life-Threatening, Hospitalization, Other)
  Sender: ROCHE
  Company Number: None

PATIENT
  Age: 47 Year
  Sex: Female
  Weight: 55 kg

DRUGS (2)
  1. OCRELIZUMAB [Suspect]
     Active Substance: OCRELIZUMAB
     Indication: Multiple sclerosis
     Dosage: INJECTIEVLOEISTOF, 40 MG/ML (MILLIGRAM PER MILLILITER),
     Route: 065
     Dates: start: 20200801, end: 20250301
  2. DALFAMPRIDINE [Suspect]
     Active Substance: DALFAMPRIDINE
     Indication: Multiple sclerosis
     Dosage: 1 PIECE TWICE A DAY
     Route: 048
     Dates: start: 20201110

REACTIONS (3)
  - Pyrexia [Not Recovered/Not Resolved]
  - Haemoglobin decreased [Not Recovered/Not Resolved]
  - Infection [Not Recovered/Not Resolved]
